FAERS Safety Report 7596136-7 (Version None)
Quarter: 2011Q3

REPORT INFORMATION
  Report Type: 
  Country: None (occurrence: None)
  Receive Date: 20110707
  Receipt Date: 20110629
  Transmission Date: 20111222
  Serious: Yes (Hospitalization)
  Sender: FDA-Public Use
  Company Number: US-CEPHALON-2011002673

PATIENT
  Sex: Female
  Weight: 65 kg

DRUGS (6)
  1. EFFEXOR [Concomitant]
     Dates: start: 20050101
  2. PROVIGIL [Suspect]
     Indication: FATIGUE
     Route: 048
  3. LAMICTAL [Concomitant]
     Dates: start: 20060101
  4. LISINOPRIL [Concomitant]
     Dates: start: 20060101
  5. MORPHINE [Concomitant]
     Dates: start: 20080101
  6. AVONEX [Concomitant]
     Dates: start: 20100101

REACTIONS (3)
  - CONVULSION [None]
  - LUNG INFECTION [None]
  - ADENOVIRUS INFECTION [None]
